FAERS Safety Report 24384559 (Version 2)
Quarter: 2024Q4

REPORT INFORMATION
  Report Type: Spontaneous
  Country: US (occurrence: US)
  Receive Date: 20241001
  Receipt Date: 20241003
  Transmission Date: 20250115
  Serious: No
  Sender: PFIZER
  Company Number: US-PFIZER INC-202400267216

PATIENT
  Age: 69 Year
  Sex: Female

DRUGS (8)
  1. PAXLOVID [Suspect]
     Active Substance: NIRMATRELVIR\RITONAVIR
     Indication: COVID-19 treatment
     Dosage: UNK UNK, 2X/DAY
     Dates: start: 20240919, end: 20240925
  2. ROSUVASTATIN [Concomitant]
     Active Substance: ROSUVASTATIN
     Dates: end: 20240918
  3. ADVAIR HFA [Concomitant]
     Active Substance: FLUTICASONE PROPIONATE\SALMETEROL XINAFOATE
     Dates: end: 20240918
  4. ALPRAZOLAM [Concomitant]
     Active Substance: ALPRAZOLAM
     Dates: end: 20240918
  5. LATANOPROST [Concomitant]
     Active Substance: LATANOPROST
  6. CLARITIN [Concomitant]
     Active Substance: LORATADINE
  7. PROTONIX [Concomitant]
     Active Substance: PANTOPRAZOLE SODIUM
  8. ALBUTEROL [Concomitant]
     Active Substance: ALBUTEROL

REACTIONS (3)
  - COVID-19 [Not Recovered/Not Resolved]
  - Disease recurrence [Not Recovered/Not Resolved]
  - Inappropriate schedule of product administration [Unknown]

NARRATIVE: CASE EVENT DATE: 20240930
